FAERS Safety Report 9519043 (Version 1)
Quarter: 2013Q3

REPORT INFORMATION
  Report Type: Spontaneous
  Country: CA (occurrence: CA)
  Receive Date: 20130912
  Receipt Date: 20130912
  Transmission Date: 20140515
  Serious: Yes (Death)
  Sender: FDA-Public Use
  Company Number: CA-PFIZER INC-2013258269

PATIENT
  Sex: Male

DRUGS (2)
  1. SUTENT [Suspect]
     Indication: PRIMITIVE NEUROECTODERMAL TUMOUR
     Dosage: 25 MG, 2 CYCLES
     Dates: start: 20120801
  2. SUTENT [Suspect]
     Dosage: 37.5 MG, 3 CYCLES

REACTIONS (1)
  - Death [Fatal]
